FAERS Safety Report 9710052 (Version 1)
Quarter: 2013Q4

REPORT INFORMATION
  Report Type: Report from Study
  Country: ZA (occurrence: ZA)
  Receive Date: 20131126
  Receipt Date: 20131126
  Transmission Date: 20140711
  Serious: Yes (Death)
  Sender: FDA-Public Use
  Company Number: ZA-ROCHE-1308472

PATIENT
  Sex: Male

DRUGS (3)
  1. MIRCERA [Suspect]
     Indication: NEPHROGENIC ANAEMIA
     Route: 058
     Dates: start: 201108
  2. MIRCERA [Suspect]
     Route: 058
     Dates: start: 201109, end: 201311
  3. VENOFER [Concomitant]
     Route: 042

REACTIONS (1)
  - Disease progression [Fatal]
